FAERS Safety Report 16890399 (Version 1)
Quarter: 2019Q4

REPORT INFORMATION
  Report Type: Spontaneous
  Country: US (occurrence: US)
  Receive Date: 20191005
  Receipt Date: 20191005
  Transmission Date: 20200122
  Serious: No
  Sender: FDA-Public Use
  Company Number: None

PATIENT
  Age: 68 Year
  Sex: Female
  Weight: 60.75 kg

DRUGS (7)
  1. IBUPROFEN. [Concomitant]
     Active Substance: IBUPROFEN
  2. ISONIAZID 300MG TABS [Suspect]
     Active Substance: ISONIAZID
     Indication: LATENT TUBERCULOSIS
     Dosage: ?          QUANTITY:1 TABLET(S);?
     Route: 048
     Dates: start: 20190930, end: 20191004
  3. AZATHIOPRINE. [Concomitant]
     Active Substance: AZATHIOPRINE
  4. BUDESONIDE. [Concomitant]
     Active Substance: BUDESONIDE
  5. PANTOPRAZOLE [Concomitant]
     Active Substance: PANTOPRAZOLE
  6. TYLENOL [Concomitant]
     Active Substance: ACETAMINOPHEN
  7. RIFAMPIN. [Suspect]
     Active Substance: RIFAMPIN

REACTIONS (12)
  - Headache [None]
  - Tremor [None]
  - Vomiting [None]
  - Nausea [None]
  - Paraesthesia [None]
  - Asthenia [None]
  - Chills [None]
  - Pruritus [None]
  - Dehydration [None]
  - Hepatic pain [None]
  - Retching [None]
  - Fatigue [None]

NARRATIVE: CASE EVENT DATE: 20191004
